FAERS Safety Report 12221007 (Version 4)
Quarter: 2017Q1

REPORT INFORMATION
  Report Type: Report from Study
  Country: US (occurrence: US)
  Receive Date: 20160330
  Receipt Date: 20170131
  Transmission Date: 20170428
  Serious: Yes (Hospitalization, Other)
  Sender: FDA-Public Use
  Company Number: US-BAYER-2015-439035

PATIENT
  Age: 45 Year
  Sex: Male
  Weight: 69.39 kg

DRUGS (13)
  1. TYVASO [Concomitant]
     Active Substance: TREPROSTINIL
     Dosage: UNK
  2. ADEMPAS [Suspect]
     Active Substance: RIOCIGUAT
     Indication: PULMONARY ARTERIAL HYPERTENSION
     Dosage: 2.5 MG, TID
     Route: 048
  3. ADEMPAS [Suspect]
     Active Substance: RIOCIGUAT
     Indication: PULMONARY ARTERIAL HYPERTENSION
     Dosage: 2.5 MG, TID
     Route: 048
     Dates: start: 20160527
  4. LETAIRIS [Concomitant]
     Active Substance: AMBRISENTAN
  5. ADEMPAS [Suspect]
     Active Substance: RIOCIGUAT
     Indication: PULMONARY ARTERIAL HYPERTENSION
     Dosage: 1 MG, TID
     Route: 048
  6. ADEMPAS [Suspect]
     Active Substance: RIOCIGUAT
     Indication: PULMONARY ARTERIAL HYPERTENSION
     Dosage: 1.5 MG, TID
     Route: 048
  7. LASIX [Suspect]
     Active Substance: FUROSEMIDE
     Dosage: 80 MG, BID
  8. ADEMPAS [Suspect]
     Active Substance: RIOCIGUAT
     Indication: PULMONARY ARTERIAL HYPERTENSION
     Dosage: UNK
     Dates: start: 20150930
  9. ADEMPAS [Suspect]
     Active Substance: RIOCIGUAT
     Indication: PULMONARY ARTERIAL HYPERTENSION
     Dosage: 7.5 MG DAILY PAH TRC AE PC ASSESSMENT
     Route: 048
     Dates: start: 20160527
  10. ADEMPAS [Suspect]
     Active Substance: RIOCIGUAT
     Indication: PULMONARY ARTERIAL HYPERTENSION
     Dosage: 0.5 MG, TID
     Route: 048
  11. ADEMPAS [Suspect]
     Active Substance: RIOCIGUAT
     Indication: PULMONARY ARTERIAL HYPERTENSION
     Dosage: UNK
  12. LASIX [Suspect]
     Active Substance: FUROSEMIDE
     Dosage: 40 MG, BID
  13. TYVASO [Concomitant]
     Active Substance: TREPROSTINIL
     Dosage: 2 BREATHS 4 TIME A DAY

REACTIONS (15)
  - Weight increased [Unknown]
  - Dizziness [Unknown]
  - Respiratory tract congestion [Unknown]
  - Dyspepsia [Unknown]
  - Pain in extremity [Unknown]
  - Nausea [Unknown]
  - Feeling abnormal [Unknown]
  - Dehydration [Unknown]
  - Syncope [Unknown]
  - Syncope [Unknown]
  - Blood pressure decreased [Unknown]
  - Influenza [Unknown]
  - Malaise [Unknown]
  - Diarrhoea [Recovering/Resolving]
  - Constipation [Unknown]

NARRATIVE: CASE EVENT DATE: 201509
